FAERS Safety Report 8108365-4 (Version None)
Quarter: 2012Q1

REPORT INFORMATION
  Report Type: 
  Country: None (occurrence: None)
  Receive Date: 20120202
  Receipt Date: 20120124
  Transmission Date: 20120608
  Serious: Yes (Other)
  Sender: FDA-Public Use
  Company Number: DE-NOVOPROD-343722

PATIENT
  Age: 5 Week
  Sex: Male

DRUGS (1)
  1. NOVOSEVEN [Suspect]
     Indication: FACTOR VII DEFICIENCY
     Dosage: 2 MG, QD
     Route: 064
     Dates: start: 20110322

REACTIONS (3)
  - CRYPTORCHISM [None]
  - FOETAL EXPOSURE DURING PREGNANCY [None]
  - HEAD DEFORMITY [None]
